FAERS Safety Report 7598758-6 (Version None)
Quarter: 2011Q3

REPORT INFORMATION
  Report Type: 
  Country: None (occurrence: None)
  Receive Date: 20110711
  Receipt Date: 20110701
  Transmission Date: 20111222
  Serious: Yes (Hospitalization)
  Sender: FDA-Public Use
  Company Number: US-BIOGENIDEC-2010BI043890

PATIENT
  Age: 54 Year
  Sex: Male

DRUGS (1)
  1. TYSABRI [Suspect]
     Indication: MULTIPLE SCLEROSIS
     Route: 042
     Dates: start: 20100608, end: 20101228

REACTIONS (4)
  - KIDNEY INFECTION [None]
  - DECREASED IMMUNE RESPONSIVENESS [None]
  - CYSTITIS ESCHERICHIA [None]
  - BACK PAIN [None]
